FAERS Safety Report 8238271-6 (Version None)
Quarter: 2012Q1

REPORT INFORMATION
  Report Type: 
  Country: None (occurrence: None)
  Receive Date: 20120327
  Receipt Date: 20120326
  Transmission Date: 20120608
  Serious: No
  Sender: FDA-Public Use
  Company Number: US-PFIZER INC-2012077500

PATIENT
  Sex: Male

DRUGS (1)
  1. NICOTROL [Suspect]
     Dosage: UNK
     Dates: start: 20110101, end: 20120320

REACTIONS (2)
  - EXPIRED DRUG ADMINISTERED [None]
  - DYSGEUSIA [None]
